FAERS Safety Report 8597494-7 (Version None)
Quarter: 2012Q3

REPORT INFORMATION
  Report Type: 
  Country: None (occurrence: None)
  Receive Date: 20120816
  Receipt Date: 20120807
  Transmission Date: 20120928
  Serious: Yes (Hospitalization, Other)
  Sender: FDA-Public Use
  Company Number: US-SANOFI-AVENTIS-2012SA057461

PATIENT
  Age: 74 Year
  Sex: Male
  Weight: 127.27 kg

DRUGS (3)
  1. XARELTO [Suspect]
     Indication: CEREBROVASCULAR ACCIDENT PROPHYLAXIS
     Route: 048
     Dates: start: 20120510, end: 20120518
  2. ASPIRIN [Suspect]
     Indication: ANTICOAGULANT THERAPY
     Route: 065
     Dates: end: 20120518
  3. PLAVIX [Suspect]
     Indication: ANTICOAGULANT THERAPY
     Route: 048
     Dates: end: 20120518

REACTIONS (8)
  - GASTROINTESTINAL HAEMORRHAGE [None]
  - ASTHENIA [None]
  - GASTRITIS EROSIVE [None]
  - FAECES DISCOLOURED [None]
  - GAIT DISTURBANCE [None]
  - CARDIAC FIBRILLATION [None]
  - HAEMOGLOBIN DECREASED [None]
  - HYPOTENSION [None]
